FAERS Safety Report 11427368 (Version 1)
Quarter: 2015Q3

REPORT INFORMATION
  Report Type: Spontaneous
  Country: US (occurrence: US)
  Receive Date: 20150827
  Receipt Date: 20150827
  Transmission Date: 20151125
  Serious: No
  Sender: FDA-Public Use
  Company Number: US-SA-2015SA078400

PATIENT
  Age: 46 Year
  Sex: Female
  Weight: 111.13 kg

DRUGS (30)
  1. CLINDAMYCIN HYDROCHLORIDE. [Concomitant]
     Active Substance: CLINDAMYCIN HYDROCHLORIDE
     Dosage: 1 DOSE UD
     Dates: start: 20150226
  2. CIPRO [Concomitant]
     Active Substance: CIPROFLOXACIN HYDROCHLORIDE
     Dates: start: 20140311
  3. TRILEPTAL [Concomitant]
     Active Substance: OXCARBAZEPINE
     Dates: start: 20110211
  4. FABRAZYME [Suspect]
     Active Substance: AGALSIDASE BETA
     Indication: LIPIDOSIS
     Dosage: 105MG EVERY 2 TO 3 WEEKS
     Route: 041
  5. ACETAMINOPHEN. [Concomitant]
     Active Substance: ACETAMINOPHEN
     Indication: PREMEDICATION
     Dates: start: 20141215
  6. VITAMIN D [Concomitant]
     Active Substance: CHOLECALCIFEROL
     Dosage: SOFTGEL; 1 DOSE DAILY
     Dates: start: 20140311
  7. MORPHINE SULFATE. [Concomitant]
     Active Substance: MORPHINE SULFATE
     Dosage: CR TABLET
     Dates: start: 20120523
  8. MOBIC [Concomitant]
     Active Substance: MELOXICAM
     Dates: start: 20110211
  9. DEXILANT [Concomitant]
     Active Substance: DEXLANSOPRAZOLE
     Dates: start: 20110211
  10. LEXAPRO [Concomitant]
     Active Substance: ESCITALOPRAM OXALATE
     Dates: start: 20110211
  11. LIDOCAINE. [Concomitant]
     Active Substance: LIDOCAINE
     Indication: PREMEDICATION
     Dosage: 4% PRIOR
     Dates: start: 20141215
  12. PANTHENOL/RETINOL/THIAMINE HYDROCHLORIDE/ASCORBIC ACID/ERGOCALCIFEROL/FOLIC ACID/RIBOFLAVIN/NICOTINA [Concomitant]
     Dates: start: 20140311
  13. XANAX [Concomitant]
     Active Substance: ALPRAZOLAM
     Dates: start: 20120523
  14. SOMA [Concomitant]
     Active Substance: CARISOPRODOL
     Dates: start: 20110211
  15. PRAVASTATIN SODIUM. [Concomitant]
     Active Substance: PRAVASTATIN SODIUM
     Dates: start: 20110211
  16. ASPIRIN. [Concomitant]
     Active Substance: ASPIRIN
     Dosage: CAPLET
     Dates: start: 20110211
  17. DIPHENHYDRAMINE HYDROCHLORIDE. [Concomitant]
     Active Substance: DIPHENHYDRAMINE HYDROCHLORIDE
     Indication: ANAPHYLACTIC REACTION
     Dosage: DOSE:50 MILLIGRAM(S)/MILLILITRE
     Dates: start: 20141215
  18. HEPARIN [Concomitant]
     Active Substance: HEPARIN SODIUM
     Indication: FLUSHING
     Dosage: FLUSH WITH 5 ML AS FINAL FLUSH
     Dates: start: 20141215
  19. EPIPEN [Concomitant]
     Active Substance: EPINEPHRINE
     Indication: ANAPHYLACTIC REACTION
     Dosage: AUTOINJECTOR
     Dates: start: 20141215
  20. KEFLEX [Concomitant]
     Active Substance: CEPHALEXIN
     Dosage: 1 DOSE UD
     Dates: start: 20150226
  21. MUCINEX [Concomitant]
     Active Substance: GUAIFENESIN
     Dosage: 1 DOSE UD
     Dates: start: 20121211
  22. METOPROLOL TARTRATE. [Concomitant]
     Active Substance: METOPROLOL TARTRATE
     Dates: start: 20110211
  23. TOPAMAX [Concomitant]
     Active Substance: TOPIRAMATE
     Dates: start: 20110211
  24. DIPHENHYDRAMINE. [Concomitant]
     Active Substance: DIPHENHYDRAMINE
     Dosage: 25 MG UD
     Dates: start: 20141215
  25. POTASSIUM CHLORIDE. [Concomitant]
     Active Substance: POTASSIUM CHLORIDE
     Dosage: 1 DOSE UD
     Dates: start: 20140414
  26. SODIUM CHLORIDE. [Concomitant]
     Active Substance: SODIUM CHLORIDE
     Indication: FLUSHING
     Dosage: 0.9% FLUSH
     Dates: start: 20141215
  27. AMOXICILLIN. [Concomitant]
     Active Substance: AMOXICILLIN
     Dates: start: 20140414
  28. SUDAFED [Concomitant]
     Active Substance: PSEUDOEPHEDRINE HYDROCHLORIDE
     Dosage: 1 DOSE UD
     Dates: start: 20121211
  29. ROXICODONE [Concomitant]
     Active Substance: OXYCODONE HYDROCHLORIDE
     Dates: start: 20120523
  30. CELEBREX [Concomitant]
     Active Substance: CELECOXIB
     Dates: start: 20110531

REACTIONS (1)
  - Sinusitis [Unknown]
